FAERS Safety Report 7238641-9 (Version None)
Quarter: 2011Q1

REPORT INFORMATION
  Report Type: 
  Country: None (occurrence: None)
  Receive Date: 20110121
  Receipt Date: 20110113
  Transmission Date: 20110831
  Serious: No
  Sender: FDA-Public Use
  Company Number: US-B.I. PHARMACEUTICALS,INC./RIDGEFIELD-2011-BP-01217BP

PATIENT
  Age: 78 Year
  Sex: Female

DRUGS (6)
  1. MULTAQ [Concomitant]
     Indication: ATRIAL FIBRILLATION
  2. ASPIRIN [Concomitant]
     Indication: ATRIAL FIBRILLATION
  3. PRADAXA [Suspect]
     Indication: ATRIAL FIBRILLATION
     Dosage: 300 MG
     Route: 048
     Dates: start: 20101101
  4. ZETIA [Concomitant]
     Indication: HYPERCHOLESTEROLAEMIA
  5. LEVOTHYROXINE [Concomitant]
     Indication: THYROID DISORDER
  6. HYDROCHLOROTHIAZIDE [Concomitant]
     Indication: BLOOD PRESSURE INCREASED

REACTIONS (2)
  - VISION BLURRED [None]
  - GLARE [None]
